FAERS Safety Report 5154862-3 (Version None)
Quarter: 2006Q4

REPORT INFORMATION
  Report Type: 
  Country: None (occurrence: None)
  Receive Date: 20061121
  Receipt Date: 20061109
  Transmission Date: 20070319
  Serious: Yes (Other)
  Sender: FDA-Public Use
  Company Number: PHEH2006US13891

PATIENT
  Age: 66 Week
  Sex: Female

DRUGS (1)
  1. TRILEPTAL [Suspect]
     Indication: ANXIETY
     Dosage: 1/2 TABLET OF 300 MG, HS
     Dates: start: 20061103, end: 20061104

REACTIONS (3)
  - ANXIETY [None]
  - HEADACHE [None]
  - HEART RATE IRREGULAR [None]
